FAERS Safety Report 8423877-1 (Version None)
Quarter: 2012Q2

REPORT INFORMATION
  Report Type: 
  Country: None (occurrence: None)
  Receive Date: 20120608
  Receipt Date: 20110713
  Transmission Date: 20120825
  Serious: No
  Sender: FDA-Public Use
  Company Number: US-ASTRAZENECA-2010SE58566

PATIENT
  Sex: Female

DRUGS (9)
  1. LISINOPRIL [Suspect]
     Route: 048
  2. ASPIRIN [Concomitant]
  3. CALCIUM [Concomitant]
  4. METFORMIN HYDROCHLORIDE [Concomitant]
  5. DYAZIDE [Concomitant]
  6. LOVASTATIN [Concomitant]
  7. CENTRUM CARDIO [Concomitant]
  8. MAXZIDE [Concomitant]
  9. ATACAND [Suspect]
     Route: 048

REACTIONS (8)
  - PRURITUS [None]
  - BLOOD CHOLESTEROL INCREASED [None]
  - CARDIAC ASSISTANCE DEVICE USER [None]
  - DRUG HYPERSENSITIVITY [None]
  - RENAL CYST [None]
  - DIABETES MELLITUS [None]
  - SWOLLEN TONGUE [None]
  - HYPERTENSION [None]
